FAERS Safety Report 4501768-6 (Version None)
Quarter: 2004Q4

REPORT INFORMATION
  Report Type: 
  Country: None (occurrence: None)
  Receive Date: 20041115
  Receipt Date: 20041115
  Transmission Date: 20050328
  Serious: Yes (Other)
  Sender: FDA-Public Use
  Company Number: None

PATIENT
  Sex: Female
  Weight: 64.8644 kg

DRUGS (1)
  1. EFFEXOR XR [Suspect]
     Indication: GENERALISED ANXIETY DISORDER
     Dosage: 300 MG    PER DAY   ORAL
     Route: 048
     Dates: start: 20040701, end: 20041110

REACTIONS (8)
  - DRUG WITHDRAWAL SYNDROME [None]
  - EYE SWELLING [None]
  - NERVOUS SYSTEM DISORDER [None]
  - PAIN [None]
  - PRURITUS [None]
  - SWELLING FACE [None]
  - THROAT IRRITATION [None]
  - URTICARIA [None]
